FAERS Safety Report 8405277-3 (Version None)
Quarter: 2012Q2

REPORT INFORMATION
  Report Type: 
  Country: None (occurrence: None)
  Receive Date: 20120603
  Receipt Date: 20110714
  Transmission Date: 20120825
  Serious: Yes (Death, Hospitalization, Other)
  Sender: FDA-Public Use
  Company Number: PHHY2011DE64090

PATIENT
  Sex: Male
  Weight: 96 kg

DRUGS (12)
  1. RASILEZ [Suspect]
     Indication: HYPERTENSION
     Route: 048
     Dates: start: 20081106, end: 20090525
  2. PANTOPRAZOLE [Concomitant]
     Indication: ULCER
     Dosage: 20 MG PER DAY
     Route: 048
     Dates: start: 20100816
  3. ARIXTRA [Concomitant]
     Indication: THROMBOSIS
     Dosage: 7.5 MG PER DAY
     Route: 058
     Dates: start: 20100816
  4. DIOVAN HCT [Suspect]
     Indication: HYPERTENSION
     Route: 048
     Dates: start: 20090605
  5. PROPAFENONE HCL [Suspect]
     Indication: ARRHYTHMIA
     Dosage: 300 MG PER DAY
     Route: 048
     Dates: start: 20071127
  6. PLAVIX [Suspect]
     Indication: CORONARY ARTERY DISEASE
     Dosage: 75 MG PER DAY
     Route: 048
     Dates: start: 20100913
  7. LEVOTHYROXINE SODIUM [Suspect]
     Indication: HYPOTHYROIDISM
     Dosage: 100 UG, PER DAY
     Route: 048
     Dates: start: 20071127
  8. PENTAERYTHRITOL TETRANITRATE [Suspect]
     Indication: CORONARY ARTERY DISEASE
     Dosage: 50 MG PER DAY
     Route: 048
     Dates: start: 20071127
  9. OMEPRAZOLE [Suspect]
     Indication: ULCER
     Dosage: 20 MG PER DAY
     Route: 048
     Dates: start: 20100605
  10. SIMVASTATIN [Suspect]
     Indication: HYPERCHOLESTEROLAEMIA
     Dosage: 20 MG, PER DAY
     Route: 048
     Dates: start: 20071127
  11. FORMOTEROL FUMARATE [Suspect]
     Indication: CHRONIC OBSTRUCTIVE PULMONARY DISEASE
     Dosage: 12 UG PER DAY
     Dates: start: 20100913
  12. FUROSEMIDE [Suspect]
     Dosage: 40 MG/ PER DAY
     Route: 048
     Dates: start: 20100913

REACTIONS (6)
  - LUMBAR SPINAL STENOSIS [None]
  - CHRONIC OBSTRUCTIVE PULMONARY DISEASE [None]
  - SEPSIS [None]
  - OEDEMA [None]
  - INTERVERTEBRAL DISC PROTRUSION [None]
  - MULTI-ORGAN FAILURE [None]
